FAERS Safety Report 9060172 (Version 1)
Quarter: 2013Q1

REPORT INFORMATION
  Report Type: Spontaneous
  Country: US (occurrence: None)
  Receive Date: 20130207
  Receipt Date: 20130207
  Transmission Date: 20140127
  Serious: Yes (Other)
  Sender: FDA-Public Use
  Company Number: None

PATIENT
  Age: 15 Year
  Sex: Female

DRUGS (1)
  1. ZARONTIN [Suspect]
     Indication: EPILEPSY
     Route: 048

REACTIONS (2)
  - Product substitution issue [None]
  - Drug ineffective [None]
